FAERS Safety Report 22762764 (Version 9)
Quarter: 2024Q2

REPORT INFORMATION
  Report Type: Spontaneous
  Country: CA (occurrence: CA)
  Receive Date: 20230728
  Receipt Date: 20240509
  Transmission Date: 20240716
  Serious: Yes (Hospitalization, Other)
  Sender: FDA-Public Use
  Company Number: CA-PFIZER INC-202300252576

PATIENT
  Age: 61 Year
  Sex: Female
  Weight: 41 kg

DRUGS (8)
  1. RUXIENCE [Suspect]
     Active Substance: RITUXIMAB-PVVR
     Indication: Granulomatosis with polyangiitis
     Dosage: 515.6 MG, WEEKLY X 4 WEEKS (1 DF)
     Route: 042
     Dates: start: 20230714, end: 20230714
  2. RUXIENCE [Suspect]
     Active Substance: RITUXIMAB-PVVR
     Dosage: 515.6 MG, WEEKLY X 4 WEEKS (1 DF)
     Route: 042
     Dates: start: 20230714, end: 20230714
  3. RUXIENCE [Suspect]
     Active Substance: RITUXIMAB-PVVR
     Dosage: 515 MG, WEEKLY, 4 WEEKS
     Route: 042
     Dates: start: 20240412
  4. RUXIENCE [Suspect]
     Active Substance: RITUXIMAB-PVVR
     Dosage: 515 MG, WEEKLY, 4 WEEKS
     Route: 042
     Dates: start: 20240412
  5. RUXIENCE [Suspect]
     Active Substance: RITUXIMAB-PVVR
     Dosage: 515 MG, WEEKLY, 4 WEEKS (515MG, WEEKLY FOR 4 WEEKS (W2))
     Route: 042
     Dates: start: 20240419
  6. RUXIENCE [Suspect]
     Active Substance: RITUXIMAB-PVVR
     Dosage: 515 MG, WEEKLY, 4 WEEKS (515MG, WEEKLY FOR 4 WEEKS (W2))
     Route: 042
     Dates: start: 20240419
  7. RUXIENCE [Suspect]
     Active Substance: RITUXIMAB-PVVR
     Dosage: 515 MG, WEEKLY, 4 WEEKS
     Route: 042
     Dates: start: 20240507
  8. PREDNISONE [Concomitant]
     Active Substance: PREDNISONE
     Dosage: 20 MG, FREQUENCY: UNKNOWN
     Route: 065
     Dates: start: 2013

REACTIONS (5)
  - Jaundice [Recovering/Resolving]
  - Venous injury [Unknown]
  - Poor venous access [Unknown]
  - Lethargy [Unknown]
  - Incorrect product administration duration [Unknown]

NARRATIVE: CASE EVENT DATE: 20230701
